FAERS Safety Report 15270691 (Version 3)
Quarter: 2018Q4

REPORT INFORMATION
  Report Type: Spontaneous
  Country: US (occurrence: US)
  Receive Date: 20180813
  Receipt Date: 20181127
  Transmission Date: 20190204
  Serious: Yes (Hospitalization, Other)
  Sender: FDA-Public Use
  Company Number: US-SA-2018SA100426

PATIENT
  Age: 66 Year
  Sex: Male

DRUGS (1)
  1. AUBAGIO [Suspect]
     Active Substance: TERIFLUNOMIDE
     Indication: MULTIPLE SCLEROSIS
     Dosage: 14 MG,QD
     Route: 048
     Dates: start: 20180119

REACTIONS (9)
  - Pyrexia [Unknown]
  - Cystitis [Recovering/Resolving]
  - Fatigue [Not Recovered/Not Resolved]
  - Mobility decreased [Unknown]
  - Bladder catheterisation [Not Recovered/Not Resolved]
  - Surgery [Recovering/Resolving]
  - Multiple sclerosis relapse [Unknown]
  - Hypoaesthesia [Unknown]
  - Injury [Recovering/Resolving]

NARRATIVE: CASE EVENT DATE: 201802
